FAERS Safety Report 5901850-2 (Version None)
Quarter: 2008Q3

REPORT INFORMATION
  Report Type: 
  Country: None (occurrence: None)
  Receive Date: 20080929
  Receipt Date: 20080614
  Transmission Date: 20090109
  Serious: Yes (Other)
  Sender: FDA-Public Use
  Company Number: DE-BAYER-200820524GPV

PATIENT
  Age: 26 Year
  Sex: Female

DRUGS (9)
  1. FLUDARABINE PHOSPHATE [Suspect]
     Indication: STEM CELL TRANSPLANT
  2. CYCLOPHOSPHAMIDE [Suspect]
     Indication: STEM CELL TRANSPLANT
  3. ATGAM [Suspect]
     Indication: STEM CELL TRANSPLANT
  4. METHOTREXATE [Suspect]
     Indication: PROPHYLAXIS AGAINST GRAFT VERSUS HOST DISEASE
  5. FLUORCHINOLONE PROPHYLAXIS [Concomitant]
     Indication: PROPHYLAXIS
  6. PENTAMIDINE [Concomitant]
     Indication: ANTIFUNGAL PROPHYLAXIS
     Route: 055
  7. TRIMETHOPRIM + SULFAMETHOXAZOLE [Concomitant]
     Indication: DRUG USE FOR UNKNOWN INDICATION
  8. ACYCLOVIR [Concomitant]
     Indication: ANTIVIRAL PROPHYLAXIS
  9. HEPARIN [Concomitant]
     Indication: PROPHYLAXIS

REACTIONS (3)
  - EPSTEIN-BARR VIRUS ANTIGEN POSITIVE [None]
  - LYMPHADENOPATHY [None]
  - PYREXIA [None]
